FAERS Safety Report 19735095 (Version 1)
Quarter: 2021Q3

REPORT INFORMATION
  Report Type: Report from Study
  Country: None (occurrence: RO)
  Receive Date: 20210824
  Receipt Date: 20210824
  Transmission Date: 20211014
  Serious: Yes (Hospitalization)
  Sender: FDA-Public Use
  Company Number: RO-ABBVIE-21K-135-4050193-00

PATIENT
  Age: 68 Year
  Sex: Female

DRUGS (5)
  1. ROLPRYNA [Concomitant]
     Active Substance: ROPINIROLE HYDROCHLORIDE
     Indication: PARKINSON^S DISEASE
     Route: 048
  2. DUODOPA [Suspect]
     Active Substance: CARBIDOPA\LEVODOPA
     Indication: PARKINSON^S DISEASE
     Dosage: DM=4.50 DC=2.70 ED=0.50 NRED=5; DMN=0.00 DCN=0.00 EDN=0.00 NREDN=0
     Route: 050
     Dates: start: 20200727
  3. ANXIAR [Concomitant]
     Active Substance: LORAZEPAM
     Indication: MAJOR DEPRESSION
     Route: 048
  4. DUODOPA [Suspect]
     Active Substance: CARBIDOPA\LEVODOPA
  5. COAXIL [Concomitant]
     Active Substance: TIANEPTINE SODIUM
     Indication: MAJOR DEPRESSION
     Route: 048

REACTIONS (4)
  - Femoral neck fracture [Recovered/Resolved]
  - Anaemia [Recovered/Resolved]
  - Mixed dementia [Not Recovered/Not Resolved]
  - Peripheral venous disease [Recovering/Resolving]

NARRATIVE: CASE EVENT DATE: 20210721
